FAERS Safety Report 6093614-7 (Version None)
Quarter: 2009Q1

REPORT INFORMATION
  Report Type: 
  Country: None (occurrence: None)
  Receive Date: 20090226
  Receipt Date: 20090218
  Transmission Date: 20090719
  Serious: Yes (Other)
  Sender: FDA-Public Use
  Company Number: PHHY2009MY06319

PATIENT
  Age: 15 Year
  Sex: Male

DRUGS (2)
  1. RITALIN [Suspect]
     Indication: AUTISM
     Dosage: 20 MG/DAY
     Route: 048
  2. RISPERIDONE [Concomitant]

REACTIONS (3)
  - AGITATION [None]
  - ATTENTION DEFICIT/HYPERACTIVITY DISORDER [None]
  - IMPULSIVE BEHAVIOUR [None]
